FAERS Safety Report 19625505 (Version 1)
Quarter: 2021Q3

REPORT INFORMATION
  Report Type: Spontaneous
  Country: US (occurrence: US)
  Receive Date: 20210728
  Receipt Date: 20210728
  Transmission Date: 20211014
  Serious: Yes (Hospitalization)
  Sender: FDA-Public Use
  Company Number: None

PATIENT
  Age: 56 Year
  Sex: Female
  Weight: 82 kg

DRUGS (1)
  1. TEPEZZA [Suspect]
     Active Substance: TEPROTUMUMAB-TRBW
     Indication: BASEDOW^S DISEASE
     Dosage: ?          OTHER FREQUENCY:EVERY 3 WEEKS;?
     Route: 041
     Dates: start: 20210529, end: 20210529

REACTIONS (9)
  - Nausea [None]
  - Vomiting [None]
  - Hyperglycaemia [None]
  - Weight decreased [None]
  - Diabetes mellitus [None]
  - Infusion related reaction [None]
  - Glycosylated haemoglobin increased [None]
  - Polyuria [None]
  - Polydipsia [None]

NARRATIVE: CASE EVENT DATE: 20210715
